FAERS Safety Report 6872750-9 (Version None)
Quarter: 2010Q3

REPORT INFORMATION
  Report Type: 
  Country: None (occurrence: None)
  Receive Date: 20100723
  Receipt Date: 20081029
  Transmission Date: 20110219
  Serious: No
  Sender: FDA-Public Use
  Company Number: US-PFIZER INC-2008092033

PATIENT
  Sex: Female
  Weight: 61.363 kg

DRUGS (14)
  1. CHANTIX [Suspect]
     Indication: SMOKING CESSATION THERAPY
     Dates: start: 20070601
  2. SYNTHROID [Concomitant]
  3. TOPROL-XL [Concomitant]
  4. PLAVIX [Concomitant]
  5. IMDUR [Concomitant]
  6. NEXIUM [Concomitant]
  7. PREMARIN [Concomitant]
  8. SYMAX [Concomitant]
  9. BENTYL [Concomitant]
  10. ZOCOR [Concomitant]
  11. ATIVAN [Concomitant]
  12. ASPIRIN [Concomitant]
  13. GLYCERYL TRINITRATE [Concomitant]
  14. FENTANYL [Concomitant]

REACTIONS (1)
  - NAUSEA [None]
